FAERS Safety Report 9907211 (Version 1)
Quarter: 2014Q1

REPORT INFORMATION
  Report Type: Spontaneous
  Country: US (occurrence: US)
  Receive Date: 20140218
  Receipt Date: 20140218
  Transmission Date: 20141002
  Serious: No
  Sender: FDA-Public Use
  Company Number: US-ASTRAZENECA-2013SE86731

PATIENT
  Age: 68 Year
  Sex: Female

DRUGS (3)
  1. ATENOLOL [Suspect]
     Indication: BLOOD PRESSURE ABNORMAL
     Route: 048
  2. ATENOLOL AND CHLORTHALIDONE [Suspect]
     Route: 065
  3. OTHER MEDICATIONS FOR BLOOD PRESSURE [Suspect]
     Indication: BLOOD PRESSURE ABNORMAL
     Route: 065

REACTIONS (1)
  - Malaise [Unknown]
